FAERS Safety Report 5143023-X (Version None)
Quarter: 2006Q4

REPORT INFORMATION
  Report Type: 
  Country: None (occurrence: None)
  Receive Date: 20061103
  Receipt Date: 20060302
  Transmission Date: 20070319
  Serious: Yes (Other)
  Sender: FDA-Public Use
  Company Number: US-ELI_LILLY_AND_COMPANY-US200605002372

PATIENT
  Age: 61 Year
  Sex: Female
  Weight: 81.632 kg

DRUGS (1)
  1. ZYPREXA [Suspect]
     Indication: DEPRESSION
     Dosage: 10 MG, UNK
     Dates: start: 20020501, end: 20030801

REACTIONS (5)
  - DIABETES MELLITUS [None]
  - KETONURIA [None]
  - LACTIC ACIDOSIS [None]
  - METABOLIC DISORDER [None]
  - OBESITY [None]
